FAERS Safety Report 23492071 (Version 2)
Quarter: 2024Q1

REPORT INFORMATION
  Report Type: Report from Study
  Country: CA (occurrence: CA)
  Receive Date: 20240207
  Receipt Date: 20240325
  Transmission Date: 20240410
  Serious: Yes (Other)
  Sender: FDA-Public Use
  Company Number: CA-UCBSA-2024004490

PATIENT
  Sex: Female

DRUGS (4)
  1. CERTOLIZUMAB PEGOL [Suspect]
     Active Substance: CERTOLIZUMAB PEGOL
     Indication: Psoriatic arthropathy
     Dosage: 200 MG PFS +200 MG OF AUTOINJECTOR
     Route: 058
     Dates: start: 20240120
  2. CERTOLIZUMAB PEGOL [Suspect]
     Active Substance: CERTOLIZUMAB PEGOL
     Dosage: 400 MILLIGRAM, EV 2 WEEKS(QOW)
     Route: 058
     Dates: start: 2024, end: 2024
  3. CERTOLIZUMAB PEGOL [Suspect]
     Active Substance: CERTOLIZUMAB PEGOL
     Dosage: 200 MILLIGRAM, EV 2 WEEKS(QOW)
     Route: 058
     Dates: start: 2024
  4. CERTOLIZUMAB PEGOL [Suspect]
     Active Substance: CERTOLIZUMAB PEGOL
     Indication: Psoriatic arthropathy
     Dosage: 200 MG PFS +200 MG OF AUTOINJECTOR
     Route: 058
     Dates: start: 20240120

REACTIONS (13)
  - Psoriatic arthropathy [Not Recovered/Not Resolved]
  - Abortion spontaneous [Not Recovered/Not Resolved]
  - Discomfort [Unknown]
  - Dry mouth [Unknown]
  - Dry throat [Unknown]
  - Musculoskeletal discomfort [Unknown]
  - Neck pain [Unknown]
  - Bone pain [Unknown]
  - Gastrointestinal disorder [Unknown]
  - Fatigue [Unknown]
  - Injection site reaction [Not Recovered/Not Resolved]
  - Maternal exposure during pregnancy [Unknown]
  - Needle issue [Unknown]

NARRATIVE: CASE EVENT DATE: 20240101
